FAERS Safety Report 25733145 (Version 2)
Quarter: 2025Q4

REPORT INFORMATION
  Report Type: Spontaneous
  Country: JP (occurrence: JP)
  Receive Date: 20250828
  Receipt Date: 20251029
  Transmission Date: 20260117
  Serious: Yes (Hospitalization, Other)
  Sender: MERCK SHARP & DOHME LLC
  Company Number: JP-009507513-2321445

PATIENT
  Age: 71 Year
  Sex: Male

DRUGS (3)
  1. PEMBROLIZUMAB [Suspect]
     Active Substance: PEMBROLIZUMAB
     Indication: Bladder transitional cell carcinoma
     Dosage: TIME INTERVAL: CYCLICAL: 200 MG CYCLICAL D1
  2. PEMBROLIZUMAB [Suspect]
     Active Substance: PEMBROLIZUMAB
     Indication: Bladder transitional cell carcinoma
     Dosage: TIME INTERVAL: CYCLICAL: 400 MG CYCLICAL D1 (FROM CYCLE 3 DAY 1)
  3. ENFORTUMAB VEDOTIN [Suspect]
     Active Substance: ENFORTUMAB VEDOTIN
     Indication: Bladder transitional cell carcinoma
     Dosage: TIME INTERVAL: CYCLICAL: 1.25 MG/KG CYCLICAL D1 AND D8

REACTIONS (15)
  - Prerenal failure [Unknown]
  - Adrenocorticotropic hormone deficiency [Unknown]
  - Liver disorder [Unknown]
  - Dry skin [Unknown]
  - Taste disorder [Unknown]
  - Blister [Unknown]
  - Nephrostomy tube removal [Recovered/Resolved]
  - Skin abrasion [Unknown]
  - Malignant neoplasm progression [Unknown]
  - Adrenal insufficiency [Unknown]
  - Hypothyroidism [Unknown]
  - Pruritus [Recovered/Resolved]
  - Hydronephrosis [Recovered/Resolved]
  - Malnutrition [Unknown]
  - Pemphigus [Unknown]
